FAERS Safety Report 15153264 (Version 1)
Quarter: 2018Q3

REPORT INFORMATION
  Report Type: Spontaneous
  Country: US (occurrence: US)
  Receive Date: 20180619
  Receipt Date: 20180619
  Transmission Date: 20181010
  Serious: Yes (Other)
  Sender: FDA-Public Use
  Company Number: None

PATIENT
  Age: 10 Year
  Sex: Male
  Weight: 38.56 kg

DRUGS (1)
  1. METHYLPHENIDATE ER 27MG [Suspect]
     Active Substance: METHYLPHENIDATE HYDROCHLORIDE
     Indication: ATTENTION DEFICIT/HYPERACTIVITY DISORDER
     Dosage: ?          OTHER FREQUENCY:Q AM;?
     Route: 048
     Dates: start: 20170101, end: 20180508

REACTIONS (3)
  - Vomiting [None]
  - Nausea [None]
  - Product substitution issue [None]

NARRATIVE: CASE EVENT DATE: 20180101
